FAERS Safety Report 12987819 (Version 3)
Quarter: 2017Q3

REPORT INFORMATION
  Report Type: Report from Study
  Country: US (occurrence: US)
  Receive Date: 20161130
  Receipt Date: 20170726
  Transmission Date: 20171127
  Serious: Yes (Other)
  Sender: FDA-Public Use
  Company Number: US-BAYER-2016-224982

PATIENT
  Age: 63 Year
  Sex: Male
  Weight: 69.84 kg

DRUGS (31)
  1. NEXAVAR [Suspect]
     Active Substance: SORAFENIB
     Indication: ACUTE MYELOID LEUKAEMIA
     Dosage: 200 MG, BID
     Route: 048
     Dates: start: 201706, end: 2017
  2. OXYCODONE [Concomitant]
     Active Substance: OXYCODONE
  3. POTASSIUM [Concomitant]
     Active Substance: POTASSIUM
  4. LORAZEPAM. [Concomitant]
     Active Substance: LORAZEPAM
  5. MAGNESIUM OXIDE. [Concomitant]
     Active Substance: MAGNESIUM OXIDE
  6. HEPARIN FLUSH [Concomitant]
     Active Substance: HEPARIN SODIUM
  7. PROMETHAZINE [Concomitant]
     Active Substance: PROMETHAZINE\PROMETHAZINE HYDROCHLORIDE
  8. TACROLIMUS. [Concomitant]
     Active Substance: TACROLIMUS
  9. NEXAVAR [Suspect]
     Active Substance: SORAFENIB
     Indication: ACUTE MYELOID LEUKAEMIA
     Dosage: 200 MG, BID
     Route: 048
     Dates: start: 2017, end: 2017
  10. VITAMIN D2 [Concomitant]
     Active Substance: ERGOCALCIFEROL
  11. URSODIOL. [Concomitant]
     Active Substance: URSODIOL
  12. FILGRASTIM [Concomitant]
     Active Substance: FILGRASTIM
  13. LEVOFLOXACIN. [Concomitant]
     Active Substance: LEVOFLOXACIN
  14. PROCHLORPERAZINE MALEATE. [Concomitant]
     Active Substance: PROCHLORPERAZINE MALEATE
  15. VALACICLOVIR [Concomitant]
     Active Substance: VALACYCLOVIR HYDROCHLORIDE
  16. FOLIC ACID. [Concomitant]
     Active Substance: FOLIC ACID
  17. NEXAVAR [Suspect]
     Active Substance: SORAFENIB
     Indication: GENE MUTATION
     Dosage: 200 MG, BID
     Route: 048
     Dates: start: 20161014
  18. POSACONAZOLE [Concomitant]
     Active Substance: POSACONAZOLE
  19. POTASSIUM CHLORIDE. [Concomitant]
     Active Substance: POTASSIUM CHLORIDE
  20. ONDANSETRON [Concomitant]
     Active Substance: ONDANSETRON
  21. PEPCID [Concomitant]
     Active Substance: FAMOTIDINE
  22. VITAMIN D3 [Concomitant]
     Active Substance: CHOLECALCIFEROL
  23. MYCOPHENOLATE SODIUM [Concomitant]
     Active Substance: MYCOPHENOLATE SODIUM
  24. BACTRIM [Concomitant]
     Active Substance: SULFAMETHOXAZOLE\TRIMETHOPRIM
  25. NEXAVAR [Suspect]
     Active Substance: SORAFENIB
     Indication: ACUTE MYELOID LEUKAEMIA
     Dosage: 400 MG, BID
     Route: 048
     Dates: start: 20161010, end: 201610
  26. CELLCEPT [Concomitant]
     Active Substance: MYCOPHENOLATE MOFETIL\MYCOPHENOLATE MOFETIL HYDROCHLORIDE
  27. TRAMADOL. [Concomitant]
     Active Substance: TRAMADOL
  28. ACYCLOVIR [ACICLOVIR] [Concomitant]
     Active Substance: ACYCLOVIR
  29. CIPROFLOXACIN. [Concomitant]
     Active Substance: CIPROFLOXACIN
  30. ACTIGALL [Concomitant]
     Active Substance: URSODIOL
  31. METHYLPREDNISOLONE. [Concomitant]
     Active Substance: METHYLPREDNISOLONE

REACTIONS (13)
  - Stem cell transplant [None]
  - Blood disorder [Unknown]
  - Unevaluable event [Unknown]
  - Gait disturbance [Recovered/Resolved]
  - Pain in extremity [Recovered/Resolved]
  - Decreased appetite [Recovering/Resolving]
  - Pain in extremity [None]
  - Skin exfoliation [Recovered/Resolved]
  - Limb discomfort [Recovering/Resolving]
  - Off label use [None]
  - Bone marrow transplant [Unknown]
  - Product use in unapproved indication [None]
  - Adverse drug reaction [Unknown]

NARRATIVE: CASE EVENT DATE: 2016
